FAERS Safety Report 9393857 (Version 1)
Quarter: 2013Q3

REPORT INFORMATION
  Report Type: Spontaneous
  Country: JP (occurrence: JP)
  Receive Date: 20130710
  Receipt Date: 20130710
  Transmission Date: 20140515
  Serious: Yes (Other)
  Sender: FDA-Public Use
  Company Number: JP-BRISTOL-MYERS SQUIBB COMPANY-19078807

PATIENT
  Sex: 0

DRUGS (1)
  1. HYDREA CAPS 500 MG [Suspect]
     Indication: THROMBOCYTOSIS
     Route: 048

REACTIONS (4)
  - Meningitis [Unknown]
  - Tuberculous pleurisy [Unknown]
  - Lymphocyte count decreased [Unknown]
  - Off label use [Unknown]
